FAERS Safety Report 14455318 (Version 3)
Quarter: 2018Q2

REPORT INFORMATION
  Report Type: Spontaneous
  Country: US (occurrence: US)
  Receive Date: 20180129
  Receipt Date: 20180426
  Transmission Date: 20180711
  Serious: Yes (Hospitalization)
  Sender: FDA-Public Use
  Company Number: US-VIFOR (INTERNATIONAL) INC.-VIT-2018-00954

PATIENT
  Age: 77 Year
  Sex: Female
  Weight: 76.73 kg

DRUGS (25)
  1. CALCIUM 500+D [Concomitant]
     Active Substance: CALCIUM\VITAMIN D
  2. TERAZOSIN HYDROCHLORIDE. [Concomitant]
     Active Substance: TERAZOSIN HYDROCHLORIDE
  3. SYNTHROID [Concomitant]
     Active Substance: LEVOTHYROXINE SODIUM
  4. ACTOS [Concomitant]
     Active Substance: PIOGLITAZONE HYDROCHLORIDE
  5. CETIRIZINE HYDROCHLORIDE. [Concomitant]
     Active Substance: CETIRIZINE HYDROCHLORIDE
  6. CHILDRENS ALLERGY NOS [Concomitant]
     Active Substance: FEXOFENADINE HYDROCHLORIDE OR LORATADINE
  7. FERROUS SULFATE. [Concomitant]
     Active Substance: FERROUS SULFATE
  8. JUNUVIA [Concomitant]
  9. ZANTAC [Concomitant]
     Active Substance: RANITIDINE HYDROCHLORIDE
  10. ZYRTEC [Concomitant]
     Active Substance: CETIRIZINE HYDROCHLORIDE
  11. CALTRATE 600+D [Concomitant]
  12. LIPITOR [Concomitant]
     Active Substance: ATORVASTATIN CALCIUM
  13. PARACETAMOL [Concomitant]
     Active Substance: ACETAMINOPHEN
  14. VITAMIN D3 [Concomitant]
     Active Substance: CHOLECALCIFEROL
  15. VELTASSA [Suspect]
     Active Substance: PATIROMER
     Indication: HYPERKALAEMIA
     Route: 048
     Dates: start: 20160512
  16. ACETYLSALICYLIC ACID [Concomitant]
     Active Substance: ASPIRIN
  17. DULOXETINE HYDROCHLORIDE. [Concomitant]
     Active Substance: DULOXETINE HYDROCHLORIDE
  18. VOLTAREN [Concomitant]
     Active Substance: DICLOFENAC SODIUM
  19. ATORVASTATIN CALCIUM. [Concomitant]
     Active Substance: ATORVASTATIN CALCIUM
  20. DICLOFENAC SODIUM. [Concomitant]
     Active Substance: DICLOFENAC SODIUM
  21. FLUTICASONE PROPIONATE. [Concomitant]
     Active Substance: FLUTICASONE PROPIONATE
  22. TRADJENTA [Concomitant]
     Active Substance: LINAGLIPTIN
  23. IRON [Concomitant]
     Active Substance: IRON
  24. LOSARTAN POTASSIUM. [Concomitant]
     Active Substance: LOSARTAN POTASSIUM
  25. RANITIDINE HYDROCHLORIDE. [Concomitant]
     Active Substance: RANITIDINE HYDROCHLORIDE

REACTIONS (2)
  - Fall [Recovered/Resolved]
  - Ankle fracture [Recovered/Resolved]

NARRATIVE: CASE EVENT DATE: 201801
